FAERS Safety Report 21286196 (Version 3)
Quarter: 2022Q3

REPORT INFORMATION
  Report Type: Spontaneous
  Country: US (occurrence: US)
  Receive Date: 20220902
  Receipt Date: 20220927
  Transmission Date: 20221027
  Serious: Yes (Hospitalization)
  Sender: FDA-Public Use
  Company Number: US-BAYER-2022A122121

PATIENT
  Age: 31 Year
  Sex: Male

DRUGS (2)
  1. KOGENATE FS [Suspect]
     Active Substance: ANTIHEMOPHILIC FACTOR, HUMAN RECOMBINANT
     Dosage: 3700 IU
     Route: 042
  2. KOGENATE FS [Suspect]
     Active Substance: ANTIHEMOPHILIC FACTOR, HUMAN RECOMBINANT
     Dosage: 3700 IU, ONCE (TO TREAT THE LEFT HAND DISORDER)
     Route: 042
     Dates: start: 20220830, end: 20220830

REACTIONS (2)
  - Haemorrhage [Recovered/Resolved]
  - Limb discomfort [None]

NARRATIVE: CASE EVENT DATE: 20220827
